FAERS Safety Report 17816000 (Version 3)
Quarter: 2020Q2

REPORT INFORMATION
  Report Type: Report from Study
  Country: US (occurrence: US)
  Receive Date: 20200522
  Receipt Date: 20200625
  Transmission Date: 20200714
  Serious: Yes (Hospitalization, Other)
  Sender: FDA-Public Use
  Company Number: US-GLAXOSMITHKLINE-US2020AMR085841

PATIENT
  Age: 65 Year
  Sex: Female

DRUGS (3)
  1. NIRAPARIB [Suspect]
     Active Substance: NIRAPARIB
     Dosage: 100 MG, QD
     Dates: start: 20200603
  2. NIRAPARIB [Suspect]
     Active Substance: NIRAPARIB
     Indication: OVARIAN CANCER
     Dosage: 200 MG, QD
     Dates: start: 202002
  3. NIRAPARIB [Suspect]
     Active Substance: NIRAPARIB
     Dosage: 100 MG
     Dates: start: 20200520

REACTIONS (13)
  - Drug monitoring procedure not performed [Unknown]
  - Insomnia [Unknown]
  - Constipation [Unknown]
  - Malignant neoplasm progression [Unknown]
  - Off label use [Unknown]
  - Gastrooesophageal reflux disease [Unknown]
  - Underdose [Unknown]
  - Dyspepsia [Unknown]
  - Blood pressure increased [Unknown]
  - Anaemia [Unknown]
  - Pulmonary oedema [Unknown]
  - Fatigue [Unknown]
  - Nausea [Not Recovered/Not Resolved]
